FAERS Safety Report 10654161 (Version 3)
Quarter: 2017Q1

REPORT INFORMATION
  Report Type: Spontaneous
  Country: US (occurrence: US)
  Receive Date: 20141216
  Receipt Date: 20170314
  Transmission Date: 20170428
  Serious: Yes (Other)
  Sender: FDA-Public Use
  Company Number: US-ELI_LILLY_AND_COMPANY-US201412001563

PATIENT
  Age: 52 Year
  Sex: Female

DRUGS (1)
  1. CYMBALTA [Suspect]
     Active Substance: DULOXETINE HYDROCHLORIDE
     Indication: DEPRESSION
     Dosage: UNK, UNKNOWN
     Route: 065
     Dates: start: 2005, end: 201212

REACTIONS (18)
  - Dizziness [Unknown]
  - Disorientation [Unknown]
  - Panic attack [Unknown]
  - Micturition urgency [Unknown]
  - Fatigue [Unknown]
  - Dysuria [Unknown]
  - Hyperhidrosis [Unknown]
  - Vertigo [Unknown]
  - Anal incontinence [Unknown]
  - Insomnia [Unknown]
  - Anxiety [Unknown]
  - Nausea [Unknown]
  - Dyspnoea [Unknown]
  - Abasia [Unknown]
  - Tremor [Unknown]
  - Vomiting [Unknown]
  - Confusional state [Unknown]
  - Drug withdrawal syndrome [Unknown]

NARRATIVE: CASE EVENT DATE: 201212
